FAERS Safety Report 14554434 (Version 1)
Quarter: 2018Q1

REPORT INFORMATION
  Report Type: Spontaneous
  Country: FR (occurrence: FR)
  Receive Date: 20180220
  Receipt Date: 20180220
  Transmission Date: 20180509
  Serious: Yes (Hospitalization)
  Sender: FDA-Public Use
  Company Number: FR-SA-2018SA037524

PATIENT
  Age: 29 Year
  Sex: Male

DRUGS (6)
  1. ALCOHOL. [Suspect]
     Active Substance: ALCOHOL
     Indication: TOXICITY TO VARIOUS AGENTS
     Route: 048
     Dates: start: 20171106, end: 20171107
  2. COCAINE [Suspect]
     Active Substance: COCAINE
     Indication: TOXICITY TO VARIOUS AGENTS
     Route: 065
     Dates: start: 20171106, end: 20171107
  3. STILNOX [Suspect]
     Active Substance: ZOLPIDEM TARTRATE
     Indication: TOXICITY TO VARIOUS AGENTS
     Route: 048
     Dates: start: 20171106, end: 20171107
  4. SERTRALINE [Suspect]
     Active Substance: SERTRALINE HYDROCHLORIDE
     Indication: TOXICITY TO VARIOUS AGENTS
     Route: 048
     Dates: start: 20171106, end: 20171107
  5. METHADONE [Suspect]
     Active Substance: METHADONE HYDROCHLORIDE
     Indication: TOXICITY TO VARIOUS AGENTS
     Route: 048
     Dates: start: 20171106, end: 20171107
  6. SERESTA [Suspect]
     Active Substance: OXAZEPAM
     Indication: TOXICITY TO VARIOUS AGENTS
     Route: 048
     Dates: start: 20171106, end: 20171107

REACTIONS (4)
  - Tremor [Recovered/Resolved]
  - Drug dependence [Unknown]
  - Anxiety [Recovered/Resolved]
  - Drug abuse [Unknown]

NARRATIVE: CASE EVENT DATE: 20171106
